FAERS Safety Report 9444670 (Version 3)
Quarter: 2013Q3

REPORT INFORMATION
  Report Type: Spontaneous
  Country: JP (occurrence: JP)
  Receive Date: 20130807
  Receipt Date: 20130920
  Transmission Date: 20140515
  Serious: Yes (Other)
  Sender: FDA-Public Use
  Company Number: JP-PFIZER INC-2013229184

PATIENT
  Age: 70 Year
  Sex: Male

DRUGS (9)
  1. LYRICA [Suspect]
     Indication: HYPOAESTHESIA
     Dosage: UNK
     Route: 048
     Dates: start: 201102, end: 201105
  2. LYRICA [Suspect]
     Dosage: UNK
     Route: 048
     Dates: start: 201202, end: 201205
  3. LYRICA [Suspect]
     Dosage: 75 MG, 1X/DAY
     Route: 048
     Dates: start: 20130618
  4. XARELTO [Concomitant]
     Dosage: DAILY DOSE 10MG
     Route: 048
  5. BEPRICOR [Concomitant]
     Dosage: 50 MG, 3X/DAY
     Route: 048
  6. OLMETEC [Concomitant]
     Indication: HYPERTENSION
     Dosage: DAILY DOSE 20MG
     Route: 048
  7. PARIET [Concomitant]
     Dosage: DAILY DOSE 10MG
     Route: 048
  8. OPALMON [Concomitant]
     Dosage: UNK
  9. METHYCOBAL [Concomitant]
     Dosage: UNK

REACTIONS (3)
  - Eye haemorrhage [Unknown]
  - Visual acuity reduced [Unknown]
  - Photopsia [Unknown]
